FAERS Safety Report 21060876 (Version 1)
Quarter: 2022Q3

REPORT INFORMATION
  Report Type: Report from Study
  Country: GT (occurrence: GT)
  Receive Date: 20220709
  Receipt Date: 20220709
  Transmission Date: 20221027
  Serious: Yes (Other)
  Sender: FDA-Public Use
  Company Number: GT-NOVARTISPH-NVSC2022GT155301

PATIENT
  Age: 60 Year
  Sex: Male

DRUGS (2)
  1. EXFORGE [Suspect]
     Active Substance: AMLODIPINE BESYLATE\VALSARTAN
     Indication: Product used for unknown indication
     Dosage: 10/320 MG, STARTED APPROXIMATELY 1 YEAR AGO
     Route: 065
  2. EXFORGE HCT [Suspect]
     Active Substance: AMLODIPINE BESYLATE\HYDROCHLOROTHIAZIDE\VALSARTAN
     Indication: Product used for unknown indication
     Dosage: 10/25/320 MG, STARTED APPROXIMATELY 1 MONTH AGO
     Route: 065
     Dates: end: 20220704

REACTIONS (3)
  - Blindness [Unknown]
  - Off label use [Unknown]
  - Drug ineffective [Unknown]
